FAERS Safety Report 7263410-3 (Version None)
Quarter: 2011Q1

REPORT INFORMATION
  Report Type: 
  Country: None (occurrence: None)
  Receive Date: 20110130
  Receipt Date: 20101106
  Transmission Date: 20110831
  Serious: No
  Sender: FDA-Public Use
  Company Number: US-ABBOTT-10P-163-0683898-00

PATIENT
  Age: 73 Year
  Sex: Female

DRUGS (6)
  1. SUPPLEMENTS [Concomitant]
     Indication: PRODUCT USED FOR UNKNOWN INDICATION
     Dosage: DAILY
  2. HUMIRA [Suspect]
     Indication: PSORIATIC ARTHROPATHY
     Dates: start: 20101001
  3. ASA [Concomitant]
     Indication: BLOOD PRESSURE ABNORMAL
  4. TRAMADOL HCL [Concomitant]
     Indication: PAIN
     Dosage: NO MORE THAN 2 TIMES/DAY, AS NEEDED
  5. MULTI-VITAMINS [Concomitant]
     Indication: PRODUCT USED FOR UNKNOWN INDICATION
     Dosage: DAILY
  6. DIOVAN [Concomitant]
     Indication: HYPERTENSION
     Dosage: 80MG DAILY

REACTIONS (2)
  - CONTUSION [None]
  - RASH MACULAR [None]
